FAERS Safety Report 16148824 (Version 4)
Quarter: 2019Q3

REPORT INFORMATION
  Report Type: Report from Study
  Country: US (occurrence: US)
  Receive Date: 20190402
  Receipt Date: 20190816
  Transmission Date: 20191004
  Serious: Yes (Other)
  Sender: FDA-Public Use
  Company Number: US-JNJFOC-20181235668

PATIENT
  Age: 85 Year
  Sex: Male

DRUGS (4)
  1. IMBRUVICA [Suspect]
     Active Substance: IBRUTINIB
     Indication: CHRONIC LYMPHOCYTIC LEUKAEMIA
     Route: 048
     Dates: start: 20181120
  2. IMBRUVICA [Suspect]
     Active Substance: IBRUTINIB
     Route: 048
     Dates: start: 20190316
  3. IMBRUVICA [Suspect]
     Active Substance: IBRUTINIB
     Route: 048
     Dates: start: 20190412
  4. IMBRUVICA [Suspect]
     Active Substance: IBRUTINIB
     Route: 048
     Dates: start: 20181122

REACTIONS (13)
  - Chest pain [Unknown]
  - Weight decreased [Unknown]
  - Rash pruritic [Not Recovered/Not Resolved]
  - Nasopharyngitis [Unknown]
  - Fatigue [Unknown]
  - Oedema peripheral [Not Recovered/Not Resolved]
  - Decreased appetite [Unknown]
  - Dyspepsia [Unknown]
  - Pruritus [Unknown]
  - Urinary tract disorder [Unknown]
  - Haemoptysis [Unknown]
  - Musculoskeletal pain [Unknown]
  - Anaemia [Unknown]

NARRATIVE: CASE EVENT DATE: 201908
